FAERS Safety Report 6467044-X (Version None)
Quarter: 2009Q4

REPORT INFORMATION
  Report Type: 
  Country: None (occurrence: None)
  Receive Date: 20091127
  Receipt Date: 20091117
  Transmission Date: 20100525
  Serious: No
  Sender: FDA-Public Use
  Company Number: SPV1-2009-02336

PATIENT
  Age: 15 Year
  Sex: Female
  Weight: 77.6 kg

DRUGS (4)
  1. EQUASYM XL          (METHYLPHENIDATE HYDROCHLORIDE) CAPSULE [Suspect]
     Indication: ATTENTION DEFICIT/HYPERACTIVITY DISORDER
     Dosage: 70 MG, 1X/DAUY:QD ORAL
     Route: 048
     Dates: start: 20060101, end: 20081101
  2. CONCERTA [Suspect]
     Indication: ATTENTION DEFICIT/HYPERACTIVITY DISORDER
     Dosage: 40 MG, 1X/DAY:QD ORAL
     Route: 048
     Dates: start: 20060101, end: 20081101
  3. DESOGESTREL AND ETHINYL ESTRADIOL [Concomitant]
  4. METHYLPHENIDATE HCL [Concomitant]

REACTIONS (5)
  - ANAEMIA [None]
  - DEPENDENCE [None]
  - DRUG EXPOSURE DURING PREGNANCY [None]
  - HEADACHE [None]
  - VOMITING [None]
